FAERS Safety Report 6902177-2 (Version None)
Quarter: 2010Q3

REPORT INFORMATION
  Report Type: 
  Country: None (occurrence: None)
  Receive Date: 20100803
  Receipt Date: 20080502
  Transmission Date: 20110219
  Serious: No
  Sender: FDA-Public Use
  Company Number: US-PFIZER INC-2008038331

PATIENT
  Sex: Female
  Weight: 73.9 kg

DRUGS (2)
  1. LYRICA [Suspect]
     Indication: FIBROMYALGIA
     Dates: start: 20080423, end: 20080427
  2. BENICAR [Concomitant]

REACTIONS (2)
  - HEMICEPHALALGIA [None]
  - VISION BLURRED [None]
